FAERS Safety Report 5265233-3 (Version None)
Quarter: 2007Q1

REPORT INFORMATION
  Report Type: 
  Country: None (occurrence: None)
  Receive Date: 20061121
  Receipt Date: 20060818
  Transmission Date: 20070707
  Serious: No
  Sender: FDA-Public Use
  Company Number: TPA2006A01394

PATIENT
  Age: 49 Year
  Sex: Female
  Weight: 72.5755 kg

DRUGS (7)
  1. ROZEREM [Suspect]
     Indication: INSOMNIA
     Dosage: SEE IMAGE
     Route: 048
     Dates: start: 20060101, end: 20060601
  2. ROZEREM [Suspect]
     Indication: INSOMNIA
     Dosage: SEE IMAGE
     Route: 048
     Dates: start: 20060601
  3. PROPRANOLOL [Concomitant]
  4. ESTRADIOL [Concomitant]
  5. VALIUM [Concomitant]
  6. VIVACTIL [Concomitant]
  7. WELLBUTRIN XL [Concomitant]

REACTIONS (5)
  - DRUG INEFFECTIVE [None]
  - DRUG TOLERANCE [None]
  - INITIAL INSOMNIA [None]
  - MIDDLE INSOMNIA [None]
  - PRESCRIBED OVERDOSE [None]
